FAERS Safety Report 21361481 (Version 1)
Quarter: 2022Q3

REPORT INFORMATION
  Report Type: Report from Study
  Country: US (occurrence: US)
  Receive Date: 20220921
  Receipt Date: 20220921
  Transmission Date: 20221026
  Serious: Yes (Hospitalization, Other)
  Sender: FDA-Public Use
  Company Number: US-GILEAD-2022-0597768

PATIENT
  Sex: Male

DRUGS (25)
  1. AZTREONAM LYSINE [Suspect]
     Active Substance: AZTREONAM LYSINE
     Indication: Pseudomonas infection
     Dosage: 75 MG, TID, ONE MONTH ON AND ONE MONTH OFF
     Route: 055
     Dates: start: 20190730
  2. AZTREONAM LYSINE [Suspect]
     Active Substance: AZTREONAM LYSINE
     Indication: Cystic fibrosis
  3. AMOXICILLIN [Concomitant]
     Active Substance: AMOXICILLIN
  4. ARNUITY ELLIPTA [Concomitant]
     Active Substance: FLUTICASONE FUROATE
  5. ATORVASTATIN [Concomitant]
     Active Substance: ATORVASTATIN
  6. BELBUCA [Concomitant]
     Active Substance: BUPRENORPHINE HYDROCHLORIDE
  7. CARVEDILOL [Concomitant]
     Active Substance: CARVEDILOL
  8. BETAMETHASONE\CLOTRIMAZOLE [Concomitant]
     Active Substance: BETAMETHASONE\CLOTRIMAZOLE
  9. DIGOXIN [Concomitant]
     Active Substance: DIGOXIN
  10. DOFETILIDE [Concomitant]
     Active Substance: DOFETILIDE
  11. ENTRESTO [Concomitant]
     Active Substance: SACUBITRIL\VALSARTAN
  12. FLUOXETINE [Concomitant]
     Active Substance: FLUOXETINE HYDROCHLORIDE
  13. FUROSEMIDE [Concomitant]
     Active Substance: FUROSEMIDE
  14. GABAPENTIN [Concomitant]
     Active Substance: GABAPENTIN
  15. HYDROCORTISONE ACETATE [Concomitant]
     Active Substance: HYDROCORTISONE ACETATE
  16. INCRUSE ELLIPTA [Concomitant]
     Active Substance: UMECLIDINIUM BROMIDE
  17. METFORMIN [Concomitant]
     Active Substance: METFORMIN HYDROCHLORIDE
  18. METOPROLOL [Concomitant]
     Active Substance: METOPROLOL
  19. MOMETASONE [Concomitant]
     Active Substance: MOMETASONE
  20. OMEPRAZOLE [Concomitant]
     Active Substance: OMEPRAZOLE
  21. POTASSIUM CHLORIDE [Concomitant]
     Active Substance: POTASSIUM CHLORIDE
  22. SOLIFENACIN [Concomitant]
     Active Substance: SOLIFENACIN
  23. SYNTHROID [Concomitant]
     Active Substance: LEVOTHYROXINE SODIUM
  24. TIZANIDINE [Concomitant]
     Active Substance: TIZANIDINE
  25. XARELTO [Concomitant]
     Active Substance: RIVAROXABAN

REACTIONS (1)
  - Ventricular tachycardia [Recovered/Resolved]
